FAERS Safety Report 9265146 (Version 2)
Quarter: 2013Q2

REPORT INFORMATION
  Report Type: Spontaneous
  Country: US (occurrence: US)
  Receive Date: 20130501
  Receipt Date: 20130607
  Transmission Date: 20140414
  Serious: No
  Sender: FDA-Public Use
  Company Number: US-PFIZER INC-2013131231

PATIENT
  Age: 30 Year
  Sex: Female
  Weight: 97 kg

DRUGS (1)
  1. SOMAVERT [Suspect]
     Indication: ACROMEGALY
     Dosage: 10 MG, 1X/DAY
     Route: 058
     Dates: start: 201304, end: 20130422

REACTIONS (1)
  - Injection site reaction [Recovered/Resolved]
